FAERS Safety Report 7324293-6 (Version None)
Quarter: 2011Q1

REPORT INFORMATION
  Report Type: 
  Country: None (occurrence: None)
  Receive Date: 20110301
  Receipt Date: 20110217
  Transmission Date: 20110831
  Serious: Yes (Other)
  Sender: FDA-Public Use
  Company Number: GB-AMGEN-GBRSP2011010074

PATIENT
  Age: 68 Year
  Sex: Female

DRUGS (7)
  1. PROLIA [Suspect]
     Indication: OSTEOPOROSIS
     Dosage: UNK
     Dates: start: 20110131
  2. MORPHINE [Concomitant]
  3. CALCITONIN [Concomitant]
  4. VITAMIN A [Concomitant]
  5. OMEPRAZOLE [Concomitant]
  6. AMITRIPTYLINE HCL [Concomitant]
  7. LEVOTHYROXINE SODIUM [Concomitant]

REACTIONS (4)
  - HEADACHE [None]
  - DERMATITIS ACNEIFORM [None]
  - RASH PRURITIC [None]
  - OCULAR HYPERAEMIA [None]
